FAERS Safety Report 24332460 (Version 1)
Quarter: 2024Q3

REPORT INFORMATION
  Report Type: Spontaneous
  Country: IT (occurrence: IT)
  Receive Date: 20240918
  Receipt Date: 20240918
  Transmission Date: 20241016
  Serious: Yes (Other)
  Sender: MYLAN
  Company Number: IT-MYLANLABS-2024M1084091

PATIENT
  Age: 18 Year
  Sex: Female

DRUGS (12)
  1. GABAPENTIN [Suspect]
     Active Substance: GABAPENTIN
     Indication: Eye pain
     Dosage: UNK
     Route: 065
  2. GABAPENTIN [Suspect]
     Active Substance: GABAPENTIN
     Indication: Eye inflammation
  3. DULOXETINE [Suspect]
     Active Substance: DULOXETINE
     Indication: Eye pain
     Dosage: UNK
     Route: 065
  4. DULOXETINE [Suspect]
     Active Substance: DULOXETINE
     Indication: Eye inflammation
  5. FOLIC ACID [Suspect]
     Active Substance: FOLIC ACID
     Indication: Eye pain
     Dosage: UNK
     Route: 065
  6. FOLIC ACID [Suspect]
     Active Substance: FOLIC ACID
     Indication: Eye inflammation
  7. GINGER [Suspect]
     Active Substance: GINGER
     Indication: Eye pain
     Dosage: UNK
     Route: 065
  8. GINGER [Suspect]
     Active Substance: GINGER
     Indication: Eye inflammation
  9. SALINE [Suspect]
     Active Substance: SODIUM CHLORIDE
     Indication: Eye pain
     Dosage: UNK UNK, TID; THREE TIMES A DAY
     Route: 065
  10. SALINE [Suspect]
     Active Substance: SODIUM CHLORIDE
     Indication: Eye inflammation
  11. FOSAPREPITANT [Concomitant]
     Active Substance: FOSAPREPITANT
     Indication: Eye pain
     Dosage: UNK
     Route: 065
  12. FOSAPREPITANT [Concomitant]
     Active Substance: FOSAPREPITANT
     Indication: Eye inflammation

REACTIONS (2)
  - Drug ineffective [Unknown]
  - Off label use [Unknown]
